FAERS Safety Report 15192335 (Version 1)
Quarter: 2018Q3

REPORT INFORMATION
  Report Type: Spontaneous
  Country: US (occurrence: US)
  Receive Date: 20180724
  Receipt Date: 20180724
  Transmission Date: 20181010
  Serious: No
  Sender: FDA-Public Use
  Company Number: US-BAUSCH-BL-2017-026328

PATIENT
  Sex: Male

DRUGS (7)
  1. ISTALOL [Suspect]
     Active Substance: TIMOLOL MALEATE
     Dosage: ABOUT 3 WEEKS AGO
     Route: 047
     Dates: start: 201708, end: 201708
  2. LUMIGAN [Concomitant]
     Active Substance: BIMATOPROST
     Indication: GLAUCOMA
     Dosage: STARTED 3 YEARS AGO. 1 DROP IN EACH EYE IN THE EVENING
     Route: 047
     Dates: start: 2014, end: 201708
  3. SIMBRINZA [Concomitant]
     Active Substance: BRIMONIDINE TARTRATE\BRINZOLAMIDE
     Indication: GLAUCOMA
     Dosage: 6 WEEKS BEFORE STARTING ISTALOL. FORM STRENGTH 1%/0.2%. 1 DROP IN EACH EYE IN THE MORNING
     Route: 047
     Dates: start: 2016, end: 201708
  4. SIMBRINZA [Concomitant]
     Active Substance: BRIMONIDINE TARTRATE\BRINZOLAMIDE
     Dosage: RESTARTED AFTER 48 HOURS OF DISCONTINUATION
     Route: 047
     Dates: start: 201708
  5. ISTALOL [Suspect]
     Active Substance: TIMOLOL MALEATE
     Indication: GLAUCOMA
     Dosage: START DATE ABOUT A YEAR AGO. 1 DROP IN EACH EYE IN THE MORNING
     Route: 047
     Dates: start: 2016
  6. LUMIGAN [Concomitant]
     Active Substance: BIMATOPROST
     Dosage: RESTARTED AFTER 48 HOURS OF DISCONTINUATION
     Route: 047
     Dates: start: 201708
  7. ISTALOL [Suspect]
     Active Substance: TIMOLOL MALEATE
     Dosage: RESTARTED AFTER 48 HOURS OF DISCONTINUATION
     Route: 047
     Dates: start: 201708

REACTIONS (7)
  - Skin burning sensation [Recovering/Resolving]
  - Blister [Recovered/Resolved]
  - Pain of skin [Recovering/Resolving]
  - Erythema [Recovering/Resolving]
  - Eye irritation [Recovering/Resolving]
  - Pruritus [Recovering/Resolving]
  - Skin exfoliation [Unknown]

NARRATIVE: CASE EVENT DATE: 2016
